FAERS Safety Report 7773091-8 (Version None)
Quarter: 2011Q3

REPORT INFORMATION
  Report Type: 
  Country: None (occurrence: None)
  Receive Date: 20110922
  Receipt Date: 20110511
  Transmission Date: 20111222
  Serious: No
  Sender: FDA-Public Use
  Company Number: US-ASTRAZENECA-2007UW09849

PATIENT
  Age: 31 Year
  Sex: Female
  Weight: 142.9 kg

DRUGS (17)
  1. SEROQUEL [Suspect]
     Route: 048
     Dates: start: 20030311
  2. NEXIUM [Concomitant]
     Route: 048
     Dates: start: 20030304
  3. ULTRACET [Concomitant]
     Dosage: TK 1 T Q 8 H PRN
     Route: 048
     Dates: start: 20030308
  4. SEROQUEL [Suspect]
     Indication: ANXIETY
     Route: 048
     Dates: start: 20020101, end: 20090201
  5. SEROQUEL [Suspect]
     Route: 048
     Dates: start: 20030311
  6. ABILIFY [Concomitant]
     Dates: start: 20090401
  7. GEODON [Concomitant]
     Dates: start: 20090201
  8. SKELAXIN [Concomitant]
     Route: 048
     Dates: start: 20030308
  9. SEROQUEL [Suspect]
     Indication: DEPRESSION
     Route: 048
     Dates: start: 20020101, end: 20090201
  10. HALDOL [Concomitant]
     Dates: start: 19940101
  11. SEROQUEL [Suspect]
     Indication: PSYCHOTIC DISORDER
     Route: 048
     Dates: start: 20020101, end: 20090201
  12. SEROQUEL [Suspect]
     Route: 048
     Dates: start: 20030311
  13. DEPAKOTE [Concomitant]
  14. RISPERDAL [Concomitant]
  15. BUSPAR [Concomitant]
  16. LEXAPRO [Concomitant]
     Route: 048
     Dates: start: 20030309
  17. HYDROCODONE BITARTRATE AND ACETAMINOPHEN [Concomitant]
     Dosage: 7.5 MG/ 750 MG TK 1 T  PO Q 4 H PRN
     Route: 048
     Dates: start: 20030312

REACTIONS (4)
  - TYPE 2 DIABETES MELLITUS [None]
  - NECK INJURY [None]
  - BACK INJURY [None]
  - BLOOD TRIGLYCERIDES INCREASED [None]
